FAERS Safety Report 6317471-6 (Version None)
Quarter: 2009Q3

REPORT INFORMATION
  Report Type: 
  Country: None (occurrence: None)
  Receive Date: 20090821
  Receipt Date: 20090814
  Transmission Date: 20100115
  Serious: Yes (Hospitalization)
  Sender: FDA-Public Use
  Company Number: US-JNJFOC-20090707569

PATIENT
  Sex: Female
  Weight: 72.12 kg

DRUGS (5)
  1. DURAGESIC-100 [Suspect]
     Indication: NEURALGIA
     Route: 062
  2. PERCOCET [Concomitant]
     Indication: PAIN
     Dosage: 10-325MG
     Route: 048
  3. NEURONTIN [Concomitant]
     Indication: NEURALGIA
     Route: 048
  4. PHENERGAN [Concomitant]
     Indication: OESOPHAGEAL ULCER
     Route: 048
  5. MANY OTHER UNSPECIFIED MEDICATIONS [Concomitant]

REACTIONS (12)
  - ABDOMINAL PAIN [None]
  - ANXIETY [None]
  - AORTIC CALCIFICATION [None]
  - APPLICATION SITE PRURITUS [None]
  - BLADDER DISORDER [None]
  - BLADDER PROLAPSE [None]
  - DEPRESSION [None]
  - DEVICE BREAKAGE [None]
  - DRUG EFFECT DECREASED [None]
  - INSOMNIA [None]
  - PAIN IN EXTREMITY [None]
  - VITAMIN D DEFICIENCY [None]
